FAERS Safety Report 17132476 (Version 4)
Quarter: 2020Q1

REPORT INFORMATION
  Report Type: Spontaneous
  Country: JP (occurrence: JP)
  Receive Date: 20191210
  Receipt Date: 20200218
  Transmission Date: 20200409
  Serious: Yes (Hospitalization, Other)
  Sender: FDA-Public Use
  Company Number: JP-TAKEDA-2019TJP028196

PATIENT
  Age: 70 Year
  Sex: Male

DRUGS (1)
  1. LIOVEL COMBINATION TABLETS HD [Suspect]
     Active Substance: ALOGLIPTIN BENZOATE\PIOGLITAZONE HYDROCHLORIDE
     Indication: TYPE 2 DIABETES MELLITUS
     Dosage: 1 DOSAGE FORM
     Route: 048
     Dates: start: 201705, end: 201912

REACTIONS (2)
  - Bladder cancer [Unknown]
  - Malignant neoplasm of renal pelvis [Recovered/Resolved]

NARRATIVE: CASE EVENT DATE: 201906
